FAERS Safety Report 19980133 (Version 1)
Quarter: 2021Q4

REPORT INFORMATION
  Report Type: Spontaneous
  Country: RO (occurrence: RO)
  Receive Date: 20211021
  Receipt Date: 20211021
  Transmission Date: 20220304
  Serious: Yes (Other)
  Sender: FDA-Public Use
  Company Number: RO-JNJFOC-20211021518

PATIENT
  Age: 70 Year
  Sex: Female

DRUGS (3)
  1. SPRAVATO [Suspect]
     Active Substance: ESKETAMINE
     Indication: Depression
     Dates: start: 20210906
  2. SPRAVATO [Suspect]
     Active Substance: ESKETAMINE
  3. SPRAVATO [Suspect]
     Active Substance: ESKETAMINE
     Dosage: 6TH DOSE
     Dates: start: 20210927

REACTIONS (3)
  - Intracranial pressure increased [Recovered/Resolved]
  - Dizziness [Recovered/Resolved]
  - Somnolence [Recovered/Resolved]

NARRATIVE: CASE EVENT DATE: 20210906
